FAERS Safety Report 17667071 (Version 2)
Quarter: 2020Q2

REPORT INFORMATION
  Report Type: Spontaneous
  Country: US (occurrence: US)
  Receive Date: 20200414
  Receipt Date: 20200506
  Transmission Date: 20200713
  Serious: Yes (Hospitalization, Other)
  Sender: FDA-Public Use
  Company Number: US-JAZZ-2020-US-004849

PATIENT
  Age: 40 Year
  Sex: Female

DRUGS (5)
  1. XYREM [Suspect]
     Active Substance: SODIUM OXYBATE
     Indication: NARCOLEPSY
     Dosage: UNKNOWN DOSE
     Route: 048
  2. BENZTROPINE [BENZATROPINE] [Concomitant]
     Active Substance: BENZTROPINE
     Indication: PRODUCT USED FOR UNKNOWN INDICATION
  3. HALDOL [Concomitant]
     Active Substance: HALOPERIDOL
     Indication: PRODUCT USED FOR UNKNOWN INDICATION
  4. STRATTERA [Concomitant]
     Active Substance: ATOMOXETINE HYDROCHLORIDE
     Indication: PRODUCT USED FOR UNKNOWN INDICATION
  5. HCTZ [Concomitant]
     Active Substance: HYDROCHLOROTHIAZIDE
     Indication: PRODUCT USED FOR UNKNOWN INDICATION

REACTIONS (4)
  - Tachycardia [Recovered/Resolved]
  - Blood pressure increased [Recovered/Resolved]
  - Mania [Unknown]
  - Intentional product misuse [Unknown]

NARRATIVE: CASE EVENT DATE: 20200309
